FAERS Safety Report 15259552 (Version 1)
Quarter: 2018Q3

REPORT INFORMATION
  Report Type: Spontaneous
  Country: US (occurrence: US)
  Receive Date: 20180809
  Receipt Date: 20180809
  Transmission Date: 20181010
  Serious: No
  Sender: FDA-Public Use
  Company Number: US-GALDERMA-US18028242

PATIENT
  Age: 22 Year
  Sex: Female

DRUGS (6)
  1. PROACTIV CLEANSING BAR [Concomitant]
     Indication: ACNE
     Route: 061
     Dates: start: 20170721, end: 201708
  2. PROACTIV MD ADAPALENE ACNE TREATMENT [Suspect]
     Active Substance: ADAPALENE
     Indication: ACNE
     Dosage: 0.1%
     Route: 061
     Dates: start: 20170721, end: 201708
  3. PROACTIV RENEWING CLEANSER [Concomitant]
     Active Substance: BENZOYL PEROXIDE
     Indication: ACNE
     Route: 061
     Dates: start: 20170721, end: 201708
  4. PROACTIV REPAIRING TREATMENT [Concomitant]
     Active Substance: BENZOYL PEROXIDE
     Indication: ACNE
     Route: 061
     Dates: start: 20170721, end: 201708
  5. PROACTIV MD DEEP CLEANSING FACE WASH [Concomitant]
     Active Substance: COSMETICS
     Indication: ACNE
     Route: 061
     Dates: start: 20170721, end: 201708
  6. PROACTIV REVITALIZING TONER [Concomitant]
     Indication: ACNE
     Route: 061
     Dates: start: 20170721, end: 201708

REACTIONS (4)
  - Erythema [Recovered/Resolved]
  - Skin hypopigmentation [Recovered/Resolved]
  - Skin exfoliation [Recovered/Resolved]
  - Skin burning sensation [Recovered/Resolved]

NARRATIVE: CASE EVENT DATE: 20170726
